FAERS Safety Report 20773553 (Version 1)
Quarter: 2022Q2

REPORT INFORMATION
  Report Type: Spontaneous
  Country: HR (occurrence: HR)
  Receive Date: 20220502
  Receipt Date: 20220502
  Transmission Date: 20220720
  Serious: Yes (Other)
  Sender: FDA-Public Use
  Company Number: None

PATIENT
  Age: 59 Year
  Sex: Male
  Weight: 85 kg

DRUGS (1)
  1. ZOLPIDEM TARTRATE [Suspect]
     Active Substance: ZOLPIDEM TARTRATE
     Indication: Product used for unknown indication
     Dosage: UNK (NEPOZNATO (6-7 TABLETA KROZ 1 DAN)
     Route: 048
     Dates: start: 20220326, end: 20220326

REACTIONS (4)
  - Somnolence [Unknown]
  - Confusional state [Unknown]
  - Slow speech [Unknown]
  - Drug abuse [Unknown]

NARRATIVE: CASE EVENT DATE: 20220327
